FAERS Safety Report 5387071-3 (Version None)
Quarter: 2007Q3

REPORT INFORMATION
  Report Type: 
  Country: None (occurrence: None)
  Receive Date: 20070710
  Receipt Date: 20070627
  Transmission Date: 20080115
  Serious: Yes (Hospitalization, Other)
  Sender: FDA-Public Use
  Company Number: 232998K06USA

PATIENT
  Age: 53 Year
  Sex: Female

DRUGS (6)
  1. REBIF [Suspect]
     Indication: MULTIPLE SCLEROSIS
     Dosage: 44 MCG, 3 IN 1 WEEKS, SUBCUTANEOUS
     Route: 058
     Dates: start: 20050509
  2. NEXIUM [Concomitant]
  3. HYDROCODONE (HYDROCODONE) [Concomitant]
  4. TRAZODONE HCL [Concomitant]
  5. ATENOLOL [Concomitant]
  6. FEMHRT (ANOVLAR) [Concomitant]

REACTIONS (1)
  - OSTEOARTHRITIS [None]
